FAERS Safety Report 23782588 (Version 3)
Quarter: 2024Q3

REPORT INFORMATION
  Report Type: Other
  Country: CA (occurrence: CA)
  Receive Date: 20240425
  Receipt Date: 20240731
  Transmission Date: 20241017
  Serious: Yes (Other)
  Sender: APOTEX
  Company Number: CA-APOTEX-2024AP005094

PATIENT
  Age: 65 Year
  Sex: Male

DRUGS (7)
  1. DOXYCYCLINE [Suspect]
     Active Substance: DOXYCYCLINE\DOXYCYCLINE HYCLATE
     Indication: Pneumonia
     Dosage: UNK
     Route: 065
  2. DOXYCYCLINE [Suspect]
     Active Substance: DOXYCYCLINE\DOXYCYCLINE HYCLATE
     Indication: Infection
  3. MOXIFLOXACIN [Suspect]
     Active Substance: MOXIFLOXACIN
     Indication: Pneumonia
     Dosage: UNK
     Route: 065
  4. MOXIFLOXACIN [Suspect]
     Active Substance: MOXIFLOXACIN
     Indication: Infection
  5. PREDNISONE [Suspect]
     Active Substance: PREDNISONE
     Indication: Pneumonia
     Dosage: UNK
     Route: 065
  6. PREDNISONE [Suspect]
     Active Substance: PREDNISONE
     Indication: Infection
  7. BENRALIZUMAB [Suspect]
     Active Substance: BENRALIZUMAB
     Indication: Asthma
     Dosage: UNK
     Route: 065

REACTIONS (5)
  - Blastomycosis [Unknown]
  - Disease progression [Unknown]
  - Pneumonia [Unknown]
  - Drug ineffective [Unknown]
  - Therapeutic product ineffective [Unknown]
